FAERS Safety Report 5859369-3 (Version None)
Quarter: 2008Q3

REPORT INFORMATION
  Report Type: 
  Country: None (occurrence: None)
  Receive Date: 20080826
  Receipt Date: 20080826
  Transmission Date: 20090109
  Serious: Yes (Death, Hospitalization)
  Sender: FDA-Public Use
  Company Number: None

PATIENT
  Sex: Female
  Weight: 85.7 kg

DRUGS (3)
  1. CYTARABINE [Suspect]
     Dosage: 850 MG
     Dates: end: 20080219
  2. DAUNORUBICIN HCL [Suspect]
     Dosage: 308 MG
     Dates: end: 20080215
  3. ETOPOSIDE [Suspect]
     Dosage: 342 MG
     Dates: end: 20080215

REACTIONS (2)
  - BRONCHOPULMONARY ASPERGILLOSIS [None]
  - ILL-DEFINED DISORDER [None]
